FAERS Safety Report 22538104 (Version 1)
Quarter: 2023Q2

REPORT INFORMATION
  Report Type: Report from Study
  Country: CO (occurrence: CO)
  Receive Date: 20230608
  Receipt Date: 20230608
  Transmission Date: 20230721
  Serious: Yes (Hospitalization, Other)
  Sender: FDA-Public Use
  Company Number: CO-JNJFOC-20220911458

PATIENT
  Age: 29 Year
  Sex: Male
  Weight: 57 kg

DRUGS (6)
  1. INVEGA TRINZA [Suspect]
     Active Substance: PALIPERIDONE PALMITATE
     Indication: Schizophrenia
     Route: 030
     Dates: start: 20200725
  2. INVEGA TRINZA [Suspect]
     Active Substance: PALIPERIDONE PALMITATE
  3. INVEGA TRINZA [Suspect]
     Active Substance: PALIPERIDONE PALMITATE
  4. VALPROIC ACID [Concomitant]
     Active Substance: VALPROIC ACID
  5. OLANZAPINE [Concomitant]
     Active Substance: OLANZAPINE
  6. RISPERIDONE [Concomitant]
     Active Substance: RISPERIDONE

REACTIONS (7)
  - Loss of consciousness [Not Recovered/Not Resolved]
  - Aggression [Not Recovered/Not Resolved]
  - Abnormal behaviour [Not Recovered/Not Resolved]
  - Tremor [Not Recovered/Not Resolved]
  - Soliloquy [Not Recovered/Not Resolved]
  - Intercepted product prescribing error [Unknown]
  - Product dose omission issue [Unknown]

NARRATIVE: CASE EVENT DATE: 20220901
